FAERS Safety Report 6224787-0 (Version None)
Quarter: 2009Q2

REPORT INFORMATION
  Report Type: 
  Country: None (occurrence: None)
  Receive Date: 20090612
  Receipt Date: 20090327
  Transmission Date: 20091009
  Serious: No
  Sender: FDA-Public Use
  Company Number: US-ABBOTT-09P-163-0565364-00

PATIENT
  Sex: Male
  Weight: 124.85 kg

DRUGS (2)
  1. HUMIRA [Suspect]
     Indication: COLITIS ULCERATIVE
     Dates: start: 20080801, end: 20090301
  2. HUMIRA [Suspect]
     Dates: start: 20090301

REACTIONS (2)
  - COLITIS ULCERATIVE [None]
  - PROCEDURAL COMPLICATION [None]
